FAERS Safety Report 6297521-6 (Version None)
Quarter: 2009Q3

REPORT INFORMATION
  Report Type: 
  Country: None (occurrence: None)
  Receive Date: 20090804
  Receipt Date: 20090804
  Transmission Date: 20100115
  Serious: Yes (Hospitalization)
  Sender: FDA-Public Use
  Company Number: None

PATIENT
  Age: 70 Year
  Sex: Male

DRUGS (1)
  1. DAPTOMYCIN [Suspect]
     Indication: BACTERAEMIA
     Dosage: 730 MG EVERY DAY IV
     Route: 042
     Dates: start: 20090330, end: 20090407

REACTIONS (1)
  - RHABDOMYOLYSIS [None]
